FAERS Safety Report 4462920-1 (Version None)
Quarter: 2004Q3

REPORT INFORMATION
  Report Type: 
  Country: None (occurrence: None)
  Receive Date: 20040927
  Receipt Date: 20040921
  Transmission Date: 20050211
  Serious: Yes (Hospitalization)
  Sender: FDA-Public Use
  Company Number: E044-316-3572

PATIENT
  Age: 77 Year
  Sex: Male
  Weight: 87 kg

DRUGS (5)
  1. DONEPEZIL/PLACEBO (DONEPEZIL HYDROCHLORIDE) [Suspect]
     Indication: DEMENTIA
     Dosage: DOUBLEBLIND, 1 IN 1 D, ORAL
     Route: 048
     Dates: start: 20040720, end: 20040811
  2. DONEPEZIL/PLACEBO (DONEPEZIL HYDROCHLORIDE) [Suspect]
     Indication: DEMENTIA
     Dosage: DOUBLEBLIND, 1 IN 1 D, ORAL
     Route: 048
     Dates: start: 20040812, end: 20040915
  3. DONEPEZIL/PLACEBO (DONEPEZIL HYDROCHLORIDE) [Suspect]
     Indication: DEMENTIA
     Dosage: DOUBLEBLIND, 1 IN 1 D, ORAL
     Route: 048
     Dates: start: 20040921
  4. DICLOFENAC (DICLOFENAC) [Concomitant]
  5. MADOPAR (MADOPAR) [Concomitant]

REACTIONS (9)
  - CLAVICLE FRACTURE [None]
  - CONDITION AGGRAVATED [None]
  - DEPRESSED LEVEL OF CONSCIOUSNESS [None]
  - FALL [None]
  - GENERAL PHYSICAL HEALTH DETERIORATION [None]
  - INSOMNIA [None]
  - LOWER RESPIRATORY TRACT INFECTION [None]
  - PARKINSON'S DISEASE [None]
  - SOMNOLENCE [None]
